FAERS Safety Report 9155907 (Version 1)
Quarter: 2013Q1

REPORT INFORMATION
  Report Type: Spontaneous
  Country: US (occurrence: US)
  Receive Date: 20130311
  Receipt Date: 20130311
  Transmission Date: 20140127
  Serious: No
  Sender: FDA-Public Use
  Company Number: US-ASTRAZENECA-2011SE21313

PATIENT
  Age: 61 Year
  Sex: Female

DRUGS (2)
  1. NEXIUM [Suspect]
     Indication: GASTROOESOPHAGEAL REFLUX DISEASE
     Route: 048
  2. CRESTOR [Suspect]
     Route: 048

REACTIONS (6)
  - Dysphonia [Unknown]
  - Throat irritation [Unknown]
  - Abdominal discomfort [Unknown]
  - Dizziness [Unknown]
  - Muscular weakness [Unknown]
  - Nausea [Unknown]
